FAERS Safety Report 18283068 (Version 6)
Quarter: 2021Q4

REPORT INFORMATION
  Report Type: Spontaneous
  Country: JP (occurrence: JP)
  Receive Date: 20200918
  Receipt Date: 20211019
  Transmission Date: 20220303
  Serious: Yes (Death, Life-Threatening, Other)
  Sender: FDA-Public Use
  Company Number: JP-PFIZER INC-2020359988

PATIENT
  Age: 26 Year
  Sex: Female
  Weight: 67.98 kg

DRUGS (10)
  1. BESPONSA [Suspect]
     Active Substance: INOTUZUMAB OZOGAMICIN
     Indication: Acute lymphocytic leukaemia
     Dosage: UNK, CYCLIC
  2. BESPONSA [Suspect]
     Active Substance: INOTUZUMAB OZOGAMICIN
     Dosage: 1.45 MG, 1X/DAY
     Dates: start: 20200219, end: 20200219
  3. BESPONSA [Suspect]
     Active Substance: INOTUZUMAB OZOGAMICIN
     Dosage: 0.9 MG, 1X/DAY
     Dates: start: 20200226, end: 20200226
  4. BESPONSA [Suspect]
     Active Substance: INOTUZUMAB OZOGAMICIN
     Dosage: 0.9 MG, 1X/DAY
     Dates: start: 20200304, end: 20200304
  5. BLINCYTO [Suspect]
     Active Substance: BLINATUMOMAB
     Indication: Acute lymphocytic leukaemia recurrent
     Dosage: 9 UG, CYCLIC (CYCLE 9 MICROGRAM, QD, IV DRIP)
     Route: 041
     Dates: start: 20200325, end: 20200331
  6. BLINCYTO [Suspect]
     Active Substance: BLINATUMOMAB
     Dosage: 28 UG, CYCLIC (CYCLE 28 MICROGRAM, QD, IV DRIP)
     Route: 041
     Dates: end: 20200509
  7. BLINCYTO [Suspect]
     Active Substance: BLINATUMOMAB
     Dosage: 28 UG, 1X/DAY
     Route: 041
     Dates: start: 20200401, end: 20200421
  8. BLINCYTO [Suspect]
     Active Substance: BLINATUMOMAB
     Dosage: 28 UG, 1X/DAY
     Route: 041
     Dates: start: 20200508, end: 20200512
  9. PROGRAF [Suspect]
     Active Substance: TACROLIMUS
     Indication: Acute lymphocytic leukaemia
     Dosage: 1.9-0.3 MG, 1X/DAY
     Dates: start: 20200528, end: 20200618
  10. CELLCEPT [Suspect]
     Active Substance: MYCOPHENOLATE MOFETIL\MYCOPHENOLATE MOFETIL HYDROCHLORIDE
     Dosage: UNK
     Dates: start: 20200219, end: 20200219

REACTIONS (4)
  - Septic shock [Fatal]
  - Venoocclusive liver disease [Fatal]
  - Thrombotic microangiopathy [Not Recovered/Not Resolved]
  - Cytokine release syndrome [Recovered/Resolved]

NARRATIVE: CASE EVENT DATE: 20200325
